FAERS Safety Report 6566052-8 (Version None)
Quarter: 2010Q1

REPORT INFORMATION
  Report Type: 
  Country: None (occurrence: None)
  Receive Date: 20100202
  Receipt Date: 20100127
  Transmission Date: 20100710
  Serious: Yes (Hospitalization)
  Sender: FDA-Public Use
  Company Number: US-BIOGENIDEC-2009BI016780

PATIENT
  Age: 56 Year
  Sex: Female
  Weight: 61 kg

DRUGS (2)
  1. AVONEX [Suspect]
     Indication: MULTIPLE SCLEROSIS
     Route: 030
     Dates: start: 19960101
  2. AVONEX [Suspect]
     Route: 030

REACTIONS (12)
  - ANOSMIA [None]
  - ARTHRITIS BACTERIAL [None]
  - BALANCE DISORDER [None]
  - BRONCHITIS [None]
  - COORDINATION ABNORMAL [None]
  - DECREASED APPETITE [None]
  - DIZZINESS [None]
  - DRY SKIN [None]
  - GAIT DISTURBANCE [None]
  - INTERVERTEBRAL DISC DISORDER [None]
  - NASOPHARYNGITIS [None]
  - WEIGHT DECREASED [None]
